FAERS Safety Report 7515797-1 (Version None)
Quarter: 2011Q2

REPORT INFORMATION
  Report Type: 
  Country: None (occurrence: None)
  Receive Date: 20110601
  Receipt Date: 20110530
  Transmission Date: 20111010
  Serious: Yes (Other)
  Sender: FDA-Public Use
  Company Number: JP-PFIZER INC-2011115955

PATIENT
  Sex: Male

DRUGS (1)
  1. PREMARIN [Suspect]
     Indication: OFF LABEL USE
     Route: 048

REACTIONS (2)
  - BREAST MASS [None]
  - CONDITION AGGRAVATED [None]
